FAERS Safety Report 20999299 (Version 2)
Quarter: 2022Q3

REPORT INFORMATION
  Report Type: Spontaneous
  Country: US (occurrence: None)
  Receive Date: 20220623
  Receipt Date: 20220707
  Transmission Date: 20221026
  Serious: Yes (Other)
  Sender: FDA-Public Use
  Company Number: US-ROCHE-3119556

PATIENT
  Sex: Male
  Weight: 83.990 kg

DRUGS (1)
  1. AVASTIN [Suspect]
     Active Substance: BEVACIZUMAB
     Indication: Diabetic retinopathy
     Dosage: NO
     Route: 050

REACTIONS (2)
  - Deafness [Not Recovered/Not Resolved]
  - Off label use [Unknown]
